FAERS Safety Report 10487277 (Version 4)
Quarter: 2020Q1

REPORT INFORMATION
  Report Type: Spontaneous
  Country: US (occurrence: US)
  Receive Date: 20141001
  Receipt Date: 20200323
  Transmission Date: 20200409
  Serious: Yes (Hospitalization, Other)
  Sender: FDA-Public Use
  Company Number: US-PFIZER INC-2014267336

PATIENT
  Age: 62 Year
  Sex: Female
  Weight: 69.85 kg

DRUGS (2)
  1. RAPAMUNE [Suspect]
     Active Substance: SIROLIMUS
     Dosage: 5 MG, ONCE DAILY
     Route: 048
     Dates: start: 2008
  2. RAPAMUNE [Suspect]
     Active Substance: SIROLIMUS
     Indication: RENAL TRANSPLANT
     Dosage: 4 MG (4 TABLETS), ONCE A DAY
     Route: 048
     Dates: start: 2008

REACTIONS (5)
  - Intentional product use issue [Unknown]
  - Pancreatitis [Unknown]
  - Malaise [Unknown]
  - Blood glucose decreased [Unknown]
  - Diabetes mellitus [Unknown]
